FAERS Safety Report 12276784 (Version 1)
Quarter: 2016Q2

REPORT INFORMATION
  Report Type: Spontaneous
  Country: US (occurrence: None)
  Receive Date: 20160415
  Receipt Date: 20160415
  Transmission Date: 20160815
  Serious: Yes (Disabling)
  Sender: FDA-Public Use
  Company Number: None

PATIENT
  Age: 22 Year
  Sex: Female
  Weight: 94.8 kg

DRUGS (1)
  1. MINOCYCLINE, 100 MG [Suspect]
     Active Substance: MINOCYCLINE HYDROCHLORIDE
     Indication: ACNE
     Dosage: 1 CAPSULE(S) TWICE A DAY TAKEN MOUTH
     Route: 048

REACTIONS (1)
  - Benign intracranial hypertension [None]

NARRATIVE: CASE EVENT DATE: 20140401
